FAERS Safety Report 6596012-2 (Version None)
Quarter: 2010Q1

REPORT INFORMATION
  Report Type: 
  Country: None (occurrence: None)
  Receive Date: 20100223
  Receipt Date: 20100211
  Transmission Date: 20100710
  Serious: Yes (Other)
  Sender: FDA-Public Use
  Company Number: PHHY2010MX08327

PATIENT
  Sex: Female

DRUGS (1)
  1. ACLASTA [Suspect]
     Indication: OSTEOPOROSIS
     Dosage: 5 MG/ 100 ML PER YEAR
     Route: 042
     Dates: start: 20091223

REACTIONS (7)
  - ASTHENIA [None]
  - BODY TEMPERATURE INCREASED [None]
  - ERYSIPELAS [None]
  - HEADACHE [None]
  - INFLUENZA [None]
  - OEDEMA PERIPHERAL [None]
  - PAIN IN EXTREMITY [None]
